FAERS Safety Report 21258092 (Version 2)
Quarter: 2022Q3

REPORT INFORMATION
  Report Type: Spontaneous
  Country: CA (occurrence: CA)
  Receive Date: 20220826
  Receipt Date: 20220909
  Transmission Date: 20221026
  Serious: Yes (Hospitalization, Other)
  Sender: FDA-Public Use
  Company Number: CA-GILEAD-2022-0593904

PATIENT
  Age: 27 Year
  Sex: Male

DRUGS (2)
  1. EPCLUSA [Suspect]
     Active Substance: SOFOSBUVIR\VELPATASVIR
     Indication: Hepatitis C
     Dosage: UNK
     Route: 065
     Dates: start: 202205
  2. FENTANYL [Suspect]
     Active Substance: FENTANYL
     Indication: Product used for unknown indication
     Dosage: SMOKED
     Route: 065
     Dates: start: 20220704, end: 20220704

REACTIONS (6)
  - Hypoperfusion [Recovered/Resolved]
  - Liver injury [Recovered/Resolved]
  - Anaemia [Recovered/Resolved]
  - Pneumonia aspiration [Recovered/Resolved]
  - Accidental overdose [Recovered/Resolved]
  - Chest pain [Recovered/Resolved]

NARRATIVE: CASE EVENT DATE: 20220704
